FAERS Safety Report 25891295 (Version 2)
Quarter: 2025Q4

REPORT INFORMATION
  Report Type: Spontaneous
  Country: EU (occurrence: EU)
  Receive Date: 20251007
  Receipt Date: 20251015
  Transmission Date: 20260118
  Serious: Yes (Other)
  Sender: ABBVIE
  Company Number: EU-TAKEDA-2025TUS083269

PATIENT
  Age: 72 Year
  Sex: Male

DRUGS (12)
  1. LEUPROLIDE ACETATE [Suspect]
     Active Substance: LEUPROLIDE ACETATE
     Indication: Prostate cancer metastatic
     Dosage: UNK
     Route: 065
  2. HYDROMORPHONE [Concomitant]
     Active Substance: HYDROMORPHONE
     Indication: Prostate cancer metastatic
     Route: 065
  3. ENZALUTAMIDE [Suspect]
     Active Substance: ENZALUTAMIDE
     Indication: Prostate cancer metastatic
     Dosage: UNK
     Route: 065
  4. RELUGOLIX [Suspect]
     Active Substance: RELUGOLIX
     Indication: Prostate cancer metastatic
     Route: 065
  5. BISOPROLOL [Concomitant]
     Active Substance: BISOPROLOL
     Indication: Prostate cancer
     Route: 065
  6. PANTOPRAZOLE [Concomitant]
     Active Substance: PANTOPRAZOLE
     Indication: Prostate cancer metastatic
     Dosage: 20 MILLIGRAM, QD
     Route: 065
  7. ABIRATERONE [Suspect]
     Active Substance: ABIRATERONE
     Indication: Prostate cancer metastatic
     Route: 065
  8. ROSUVASTATIN [Concomitant]
     Active Substance: ROSUVASTATIN
     Indication: Prostate cancer metastatic
     Route: 065
  9. PREGABALIN [Concomitant]
     Active Substance: PREGABALIN
     Indication: Prostate cancer metastatic
     Route: 065
  10. PREGABALIN [Concomitant]
     Active Substance: PREGABALIN
     Indication: Prostate cancer metastatic
     Dosage: 150 MILLIGRAM, QD
     Route: 065
  11. EDOXABAN [Concomitant]
     Active Substance: EDOXABAN
     Indication: Prostate cancer metastatic
     Route: 065
  12. EDOXABAN [Concomitant]
     Active Substance: EDOXABAN
     Indication: Prostate cancer metastatic
     Route: 065

REACTIONS (2)
  - Acute kidney injury [Unknown]
  - Prostate cancer [Unknown]
